FAERS Safety Report 17220399 (Version 1)
Quarter: 2019Q4

REPORT INFORMATION
  Report Type: Spontaneous
  Country: US (occurrence: US)
  Receive Date: 20191231
  Receipt Date: 20191231
  Transmission Date: 20200122
  Serious: No
  Sender: FDA-Public Use
  Company Number: US-BAUSCH-BL-2019-064752

PATIENT
  Sex: Female
  Weight: 66 kg

DRUGS (1)
  1. FLUOROURACIL CREAM 5% [Suspect]
     Active Substance: FLUOROURACIL
     Indication: PRECANCEROUS SKIN LESION
     Route: 061
     Dates: start: 20191126

REACTIONS (5)
  - Skin exfoliation [Not Recovered/Not Resolved]
  - Product quality issue [Unknown]
  - Therapeutic product effect decreased [Unknown]
  - Product packaging quantity issue [Unknown]
  - Product dispensing error [Unknown]

NARRATIVE: CASE EVENT DATE: 20191126
